FAERS Safety Report 9612991 (Version 1)
Quarter: 2013Q4

REPORT INFORMATION
  Report Type: Spontaneous
  Country: NL (occurrence: NL)
  Receive Date: 20131010
  Receipt Date: 20131010
  Transmission Date: 20140711
  Serious: Yes (Death)
  Sender: FDA-Public Use
  Company Number: NL-IPSEN BIOPHARMACEUTICALS, INC.-2013-4429

PATIENT
  Sex: Male

DRUGS (1)
  1. SOMATULINE AUTOSOLUTION 60MG [Suspect]
     Indication: NEUROENDOCRINE TUMOUR
     Dosage: 90 MG
     Route: 058
     Dates: start: 20100222, end: 20130708

REACTIONS (1)
  - Disease progression [Fatal]
